FAERS Safety Report 19430979 (Version 4)
Quarter: 2021Q3

REPORT INFORMATION
  Report Type: Report from Study
  Country: US (occurrence: US)
  Receive Date: 20210618
  Receipt Date: 20210824
  Transmission Date: 20211014
  Serious: Yes (Other)
  Sender: FDA-Public Use
  Company Number: US-BIOGEN-2021BI01003495

PATIENT
  Sex: Female

DRUGS (8)
  1. TYSABRI [Suspect]
     Active Substance: NATALIZUMAB
     Route: 065
  2. TYSABRI [Suspect]
     Active Substance: NATALIZUMAB
     Route: 065
  3. TYSABRI [Suspect]
     Active Substance: NATALIZUMAB
     Indication: MULTIPLE SCLEROSIS
     Route: 065
     Dates: start: 20090710
  4. TYSABRI [Suspect]
     Active Substance: NATALIZUMAB
     Route: 065
     Dates: start: 20090710
  5. TYSABRI [Suspect]
     Active Substance: NATALIZUMAB
     Route: 065
  6. TYSABRI [Suspect]
     Active Substance: NATALIZUMAB
     Route: 065
  7. TYSABRI [Suspect]
     Active Substance: NATALIZUMAB
     Dosage: MD CHANGED HER FREQUENCY IN APRIL TO EVERY 10 WEEKS FOR 2 INFUSIONS AND THEN EVERY 12 WEEKS FOR 2...
     Route: 065
     Dates: start: 202104
  8. TYSABRI [Suspect]
     Active Substance: NATALIZUMAB
     Route: 065

REACTIONS (7)
  - Fatigue [Unknown]
  - Anal incontinence [Unknown]
  - Hemiparesis [Unknown]
  - Prescribed underdose [Not Recovered/Not Resolved]
  - Peroneal nerve palsy [Unknown]
  - Cardiac disorder [Unknown]
  - Heart rate decreased [Unknown]
